FAERS Safety Report 8221623-8 (Version None)
Quarter: 2012Q1

REPORT INFORMATION
  Report Type: 
  Country: None (occurrence: None)
  Receive Date: 20120316
  Receipt Date: 20120302
  Transmission Date: 20120608
  Serious: Yes (Hospitalization, Other)
  Sender: FDA-Public Use
  Company Number: 2012P1008310

PATIENT
  Age: 76 Year
  Sex: Female
  Weight: 68 kg

DRUGS (23)
  1. LORAZEPAM [Concomitant]
  2. ALLOPURINOL [Concomitant]
  3. LASIX [Concomitant]
  4. VITAMIN D [Concomitant]
  5. FERROUS SULFATE TAB [Concomitant]
  6. SPIRONOLACTONE [Concomitant]
  7. LEVOTHYROXINE SODIUM [Concomitant]
  8. CELEXA [Concomitant]
  9. INFUMORPH [Suspect]
     Indication: PAIN
     Dosage: 1.5 MG;QD;INTH
     Route: 037
  10. AMITRIPTYLINE HCL [Concomitant]
  11. PRILOSEC [Concomitant]
  12. POTASSIUM CHLORIDE [Concomitant]
  13. MULTI-VITAMINS [Concomitant]
  14. HUMALOG [Concomitant]
  15. MIRALAX [Concomitant]
  16. ZAROXOLYN [Concomitant]
  17. LOTRISINE TOPICAL CREAM [Concomitant]
  18. FISH OIL [Concomitant]
  19. GABAPENTIN [Concomitant]
  20. LANTUS [Concomitant]
  21. ISOSORBIDE DINITRATE [Concomitant]
  22. LIDOCAINE [Concomitant]
  23. SENNA [Concomitant]

REACTIONS (13)
  - BLOOD PRESSURE DECREASED [None]
  - SOMNOLENCE [None]
  - IMPLANT SITE INFECTION [None]
  - ATRIAL FIBRILLATION [None]
  - CACHEXIA [None]
  - WHEEZING [None]
  - VARICOSE VEIN [None]
  - PURULENT DISCHARGE [None]
  - APPLICATION SITE ERYTHEMA [None]
  - APPLICATION SITE SWELLING [None]
  - RALES [None]
  - OEDEMA PERIPHERAL [None]
  - HEART RATE IRREGULAR [None]
